FAERS Safety Report 6936592-8 (Version None)
Quarter: 2010Q3

REPORT INFORMATION
  Report Type: 
  Country: None (occurrence: None)
  Receive Date: 20100823
  Receipt Date: 20100813
  Transmission Date: 20110219
  Serious: Yes (Disabling, Other)
  Sender: FDA-Public Use
  Company Number: US-PFIZER INC-2010102525

PATIENT
  Age: 62 Year
  Sex: Female

DRUGS (1)
  1. LIPITOR [Suspect]
     Dosage: 20 MG, UNK

REACTIONS (3)
  - DRUG HYPERSENSITIVITY [None]
  - JOINT LOCK [None]
  - MUSCLE TIGHTNESS [None]
